FAERS Safety Report 14007012 (Version 1)
Quarter: 2017Q3

REPORT INFORMATION
  Report Type: Spontaneous
  Country: US (occurrence: US)
  Receive Date: 20170925
  Receipt Date: 20170925
  Transmission Date: 20171128
  Serious: No
  Sender: FDA-Public Use
  Company Number: US-PFIZER INC-2017413567

PATIENT
  Sex: Female

DRUGS (3)
  1. ENBREL [Concomitant]
     Active Substance: ETANERCEPT
     Dosage: UNK
     Dates: start: 201312, end: 201406
  2. METHOTREXATE SODIUM. [Suspect]
     Active Substance: METHOTREXATE SODIUM
     Indication: RHEUMATOID ARTHRITIS
     Dosage: UNK
     Dates: start: 201011, end: 201409
  3. REMICADE [Concomitant]
     Active Substance: INFLIXIMAB
     Dosage: UNK
     Dates: start: 201011

REACTIONS (1)
  - Abdominal discomfort [Unknown]
